FAERS Safety Report 4964710-X (Version None)
Quarter: 2006Q2

REPORT INFORMATION
  Report Type: 
  Country: None (occurrence: None)
  Receive Date: 20060406
  Receipt Date: 20050303
  Transmission Date: 20061013
  Serious: Yes (Hospitalization, Disabling)
  Sender: FDA-Public Use
  Company Number: US-MERCK-0503USA00851

PATIENT
  Age: 51 Year
  Sex: Female
  Weight: 74 kg

DRUGS (23)
  1. VIOXX [Suspect]
     Indication: OSTEOARTHRITIS
     Route: 048
     Dates: start: 19991227, end: 20040930
  2. VIOXX [Suspect]
     Route: 048
     Dates: start: 20030301, end: 20040930
  3. VIOXX [Suspect]
     Indication: ARTHRITIS
     Route: 048
     Dates: start: 19991227, end: 20040930
  4. VIOXX [Suspect]
     Route: 048
     Dates: start: 20030301, end: 20040930
  5. ZOCOR [Concomitant]
     Route: 065
  6. AVAPRO [Concomitant]
     Route: 065
  7. PREMARIN [Concomitant]
     Route: 065
  8. RANITIDINE [Concomitant]
     Route: 065
  9. ALPRAZOLAM [Concomitant]
     Route: 065
  10. INDAPAMIDE [Concomitant]
     Route: 065
  11. LEVAQUIN [Concomitant]
     Route: 065
  12. ALLEGRA [Concomitant]
     Route: 065
  13. NEXIUM [Concomitant]
     Route: 065
  14. METOCLOPRAMIDE [Concomitant]
     Route: 065
  15. TRICOR [Concomitant]
     Route: 065
  16. PREVACID [Concomitant]
     Route: 065
  17. NEURONTIN [Concomitant]
     Route: 065
  18. IBUPROFEN [Concomitant]
     Route: 065
  19. VICOPROFEN [Concomitant]
     Route: 065
  20. HYDROCODONE BITARTRATE [Concomitant]
     Route: 065
  21. PROPOXYPHENE HYDROCHLORIDE [Concomitant]
     Route: 065
  22. VITAMINS (UNSPECIFIED) [Concomitant]
     Route: 065
  23. MEDROXYPROGESTERONE ACETATE [Concomitant]
     Route: 065

REACTIONS (24)
  - ABDOMINAL PAIN UPPER [None]
  - ADVERSE EVENT [None]
  - ANGINA UNSTABLE [None]
  - ANXIETY [None]
  - ARTHROPATHY [None]
  - BACK INJURY [None]
  - CARDIAC DISORDER [None]
  - CARDIAC MURMUR [None]
  - CARDIAC VALVE DISEASE [None]
  - CHEST PAIN [None]
  - CORONARY ARTERY DISEASE [None]
  - DEPRESSION [None]
  - DIARRHOEA [None]
  - DYSARTHRIA [None]
  - GASTRITIS [None]
  - GASTROOESOPHAGEAL REFLUX DISEASE [None]
  - HAEMOGLOBIN DECREASED [None]
  - HYPERTENSION [None]
  - MITRAL VALVE INCOMPETENCE [None]
  - MYOCARDIAL INFARCTION [None]
  - NAUSEA [None]
  - NECK INJURY [None]
  - RETROPERITONEAL HAEMATOMA [None]
  - TRICUSPID VALVE INCOMPETENCE [None]
